FAERS Safety Report 14495915 (Version 2)
Quarter: 2018Q1

REPORT INFORMATION
  Report Type: Spontaneous
  Country: AT (occurrence: AT)
  Receive Date: 20180207
  Receipt Date: 20180221
  Transmission Date: 20180509
  Serious: Yes (Hospitalization, Other)
  Sender: FDA-Public Use
  Company Number: AT-AMGEN-AUTSP2018014735

PATIENT
  Age: 92 Year
  Sex: Female
  Weight: 43 kg

DRUGS (3)
  1. PROLIA [Suspect]
     Active Substance: DENOSUMAB
     Indication: OSTEOPOROSIS
     Dosage: UNK UNK, Q6MO
     Route: 058
     Dates: start: 201303, end: 201710
  2. RAMIPRIL. [Concomitant]
     Active Substance: RAMIPRIL
  3. THROMBO ASS [Concomitant]
     Active Substance: ASPIRIN

REACTIONS (2)
  - Osteolysis [Unknown]
  - Osteonecrosis of jaw [Recovering/Resolving]

NARRATIVE: CASE EVENT DATE: 20170919
